FAERS Safety Report 16679286 (Version 1)
Quarter: 2019Q3

REPORT INFORMATION
  Report Type: Spontaneous
  Country: FR (occurrence: FR)
  Receive Date: 20190807
  Receipt Date: 20190807
  Transmission Date: 20191004
  Serious: Yes (Hospitalization)
  Sender: FDA-Public Use
  Company Number: FR-ENDO PHARMACEUTICALS INC-2019-107005

PATIENT
  Age: 34 Year
  Sex: Male

DRUGS (2)
  1. AVEED [Suspect]
     Active Substance: TESTOSTERONE UNDECANOATE
     Indication: PERFORMANCE ENHANCING PRODUCT USE
     Dosage: UNK UNKNOWN, UNKNOWN
     Route: 030
  2. OXANDROLONE. [Suspect]
     Active Substance: OXANDROLONE
     Indication: PERFORMANCE ENHANCING PRODUCT USE
     Dosage: UNK UNKNOWN, UNKNOWN
     Route: 048

REACTIONS (2)
  - Prothrombin time shortened [Recovered/Resolved]
  - Intentional product misuse [Recovered/Resolved]

NARRATIVE: CASE EVENT DATE: 20190617
